FAERS Safety Report 4978292-X (Version None)
Quarter: 2006Q2

REPORT INFORMATION
  Report Type: 
  Country: None (occurrence: None)
  Receive Date: 20060414
  Receipt Date: 20060407
  Transmission Date: 20061013
  Serious: Yes (Hospitalization)
  Sender: FDA-Public Use
  Company Number: 2006-01393

PATIENT
  Age: 87 Year
  Sex: Female

DRUGS (7)
  1. OXYTROL [Suspect]
     Indication: POLLAKIURIA
     Dosage: 1 PATCH, TRANSDERMAL
     Route: 062
     Dates: start: 20060113, end: 20060116
  2. OXYTROL [Suspect]
     Indication: URINARY INCONTINENCE
     Dosage: 1 PATCH, TRANSDERMAL
     Route: 062
     Dates: start: 20060113, end: 20060116
  3. ZESTRIL [Concomitant]
  4. LASIX [Concomitant]
  5. NEXIUM [Concomitant]
  6. OSCAL (CALCIUM CARBONATE) [Concomitant]
  7. MICRONASE [Concomitant]

REACTIONS (2)
  - DISORIENTATION [None]
  - LETHARGY [None]
